FAERS Safety Report 6936833-7 (Version None)
Quarter: 2010Q3

REPORT INFORMATION
  Report Type: 
  Country: None (occurrence: None)
  Receive Date: 20100818
  Receipt Date: 20100807
  Transmission Date: 20110219
  Serious: Yes (Hospitalization)
  Sender: FDA-Public Use
  Company Number: IPC201008-000243

PATIENT
  Age: 52 Year
  Sex: Female

DRUGS (7)
  1. METOPROLOL TARTRATE [Suspect]
     Dosage: 200 MG, TWICE DAILY, PRIOR TO ADMISSION; 100MG, TWICE, HOSPITAL DAY 1; 200MG, HOSPITAL DAY 2
  2. DILTIAZEM [Suspect]
     Dosage: 180MG ONCE DAILY, PRIOR TO ADMISSION; 180MG, HOSPITAL DAY 2
  3. CLONIDINE [Suspect]
     Dosage: 0.2 MG 3 TIMES DAILY, PRIOR TO ADMISSION; 0.2MG ONCE, HOSPITAL DAY 1, ORAL; 0.1MG, HOSPITAL DAY 2
     Route: 048
  4. HYDRALAZINE [Suspect]
     Dosage: SEE IMAGE
     Route: 042
  5. LIPONAVIR/RITONAVIR (TABLETS) [Suspect]
     Dosage: TWO 200/50MG TWICE, PRIOR TO ADMISSION; 2 200/50MG TWICE, HOSPITAL DAY 1
  6. NIFEDIPINE [Suspect]
     Dosage: 60MG
  7. LABETALOL HCL [Suspect]
     Dosage: 20MG ONCE, HOSPITAL DAY 1, INTRAVENOUS
     Route: 042

REACTIONS (7)
  - ATRIOVENTRICULAR BLOCK FIRST DEGREE [None]
  - CONFUSIONAL STATE [None]
  - DEPRESSED LEVEL OF CONSCIOUSNESS [None]
  - DRUG INTERACTION [None]
  - ELECTROCARDIOGRAM QRS COMPLEX SHORTENED [None]
  - HYPOTENSION [None]
  - OVERDOSE [None]
